FAERS Safety Report 6262681-X (Version None)
Quarter: 2009Q3

REPORT INFORMATION
  Report Type: 
  Country: None (occurrence: None)
  Receive Date: 20090708
  Receipt Date: 20090630
  Transmission Date: 20100115
  Serious: No
  Sender: FDA-Public Use
  Company Number: 2009008035

PATIENT
  Age: 57 Year
  Sex: Male
  Weight: 67.586 kg

DRUGS (13)
  1. FENTORA [Suspect]
     Indication: ANAL NEOPLASM
  2. ACTIQ [Concomitant]
  3. FENTANYL [Concomitant]
  4. METHADONE HCL [Concomitant]
  5. LISINOPRIL [Concomitant]
  6. HYTRIN [Concomitant]
  7. ATIVAN [Concomitant]
  8. KLONOPIN [Concomitant]
  9. IRON (IRON) [Concomitant]
  10. MULTIVITAMIN (VITAMIN NOS) [Concomitant]
  11. DRONABINOL [Concomitant]
  12. PROCHLORPERAZINE (PROCHLOREPERAZINE) [Concomitant]
  13. COLACE [Concomitant]

REACTIONS (3)
  - DRUG INEFFECTIVE [None]
  - DRUG PRESCRIBING ERROR [None]
  - MEDICATION ERROR [None]
